FAERS Safety Report 16119805 (Version 1)
Quarter: 2019Q1

REPORT INFORMATION
  Report Type: Spontaneous
  Country: FR (occurrence: FR)
  Receive Date: 20190326
  Receipt Date: 20190326
  Transmission Date: 20190418
  Serious: Yes (Hospitalization, Other)
  Sender: FDA-Public Use
  Company Number: FR-BRISTOL-MYERS SQUIBB COMPANY-BMS-2019-028265

PATIENT
  Age: 87 Year
  Sex: Female
  Weight: 73.3 kg

DRUGS (5)
  1. CEFOTAXIME [Suspect]
     Active Substance: CEFOTAXIME SODIUM
     Indication: COLITIS
     Dosage: 1 DOSAGE FORM, DRUG INTERVAL:1 DAY
     Route: 058
     Dates: start: 20190116, end: 20190121
  2. ELIQUIS [Suspect]
     Active Substance: APIXABAN
     Indication: CEREBROVASCULAR ACCIDENT PROPHYLAXIS
     Dosage: 2 DOSAGE FORM, DRUG INTERVAL:1 DAY
     Route: 048
     Dates: start: 20190118, end: 20190123
  3. COLCHIMAX                          /00728901/ [Suspect]
     Active Substance: COLCHICINE\DICYCLOMINE HYDROCHLORIDE
     Indication: GOUT
     Dosage: 3 DOSAGE FORM, DRUG INTERVAL:1 DAY
     Route: 048
     Dates: start: 20190116, end: 20190119
  4. DOLIPRANE [Suspect]
     Active Substance: ACETAMINOPHEN
     Indication: PAIN
     Dosage: 3 GRAM, DRUG INTERVAL:1 DAY
     Route: 048
  5. METRONIDAZOLE. [Suspect]
     Active Substance: METRONIDAZOLE
     Indication: COLITIS
     Dosage: 1500 MILLIGRAM, DRUG INTERVAL:1 DAY
     Route: 042
     Dates: start: 20190116, end: 20190123

REACTIONS (2)
  - Hepatic failure [Recovering/Resolving]
  - Hepatocellular injury [Recovering/Resolving]

NARRATIVE: CASE EVENT DATE: 20190121
